FAERS Safety Report 17644271 (Version 1)
Quarter: 2020Q2

REPORT INFORMATION
  Report Type: Spontaneous
  Country: US (occurrence: US)
  Receive Date: 20200408
  Receipt Date: 20200408
  Transmission Date: 20200713
  Serious: No
  Sender: FDA-Public Use
  Company Number: US-PFIZER INC-2020143650

PATIENT
  Age: 65 Year
  Sex: Female

DRUGS (5)
  1. BETAINE [Suspect]
     Active Substance: BETAINE
     Dosage: UNK
  2. INOSITOL [Suspect]
     Active Substance: INOSITOL
     Dosage: UNK
  3. INOSITOL NIACINATE [Suspect]
     Active Substance: INOSITOL NIACINATE
     Dosage: UNK
  4. NIACIN. [Suspect]
     Active Substance: NIACIN
     Dosage: UNK
  5. AZITHROMYCIN ANHYDROUS. [Suspect]
     Active Substance: AZITHROMYCIN ANHYDROUS
     Dosage: UNK

REACTIONS (1)
  - Drug hypersensitivity [Unknown]
